FAERS Safety Report 7503046-X (Version None)
Quarter: 2011Q2

REPORT INFORMATION
  Report Type: 
  Country: None (occurrence: None)
  Receive Date: 20110525
  Receipt Date: 20101007
  Transmission Date: 20111010
  Serious: No
  Sender: FDA-Public Use
  Company Number: US-NOVEN-ALL1-2010-05256

PATIENT
  Sex: Female

DRUGS (2)
  1. ALBUTEROL [Concomitant]
     Dosage: UNK, AS REQ'D
     Route: 055
  2. DAYTRANA [Suspect]
     Dosage: 30 MG, 1X/DAY:QD
     Route: 062

REACTIONS (2)
  - NO ADVERSE EVENT [None]
  - WRONG TECHNIQUE IN DRUG USAGE PROCESS [None]
